FAERS Safety Report 10039403 (Version 3)
Quarter: 2014Q2

REPORT INFORMATION
  Report Type: Report from Study
  Country: AU (occurrence: AU)
  Receive Date: 20140326
  Receipt Date: 20140414
  Transmission Date: 20141212
  Serious: Yes (Other)
  Sender: FDA-Public Use
  Company Number: AU-SA-2013SA098717

PATIENT
  Age: 36 Year
  Sex: Female

DRUGS (10)
  1. AUBAGIO [Suspect]
     Indication: RELAPSING-REMITTING MULTIPLE SCLEROSIS
     Route: 048
     Dates: start: 20130416
  2. AUBAGIO [Suspect]
     Indication: RELAPSING-REMITTING MULTIPLE SCLEROSIS
     Route: 048
     Dates: start: 20130603
  3. COVERSYL [Concomitant]
  4. SOMAC [Concomitant]
     Indication: PRODUCT USED FOR UNKNOWN INDICATION
  5. THYROXIN [Concomitant]
     Indication: PRODUCT USED FOR UNKNOWN INDICATION
  6. MARVELON [Concomitant]
     Indication: PRODUCT USED FOR UNKNOWN INDICATION
  7. LEXAPRO [Concomitant]
     Indication: PRODUCT USED FOR UNKNOWN INDICATION
  8. VITAMIN B-COMPLEX [Concomitant]
     Indication: PRODUCT USED FOR UNKNOWN INDICATION
  9. MOBIC [Concomitant]
  10. MULTIVITAMINS [Concomitant]

REACTIONS (7)
  - Alopecia [Not Recovered/Not Resolved]
  - Nasopharyngitis [Recovering/Resolving]
  - Lower limb fracture [Recovering/Resolving]
  - Onychoclasis [Recovered/Resolved]
  - Menorrhagia [Unknown]
  - Speech disorder [Recovered/Resolved]
  - Flatulence [Recovered/Resolved]
